FAERS Safety Report 9374989 (Version 1)
Quarter: 2013Q2

REPORT INFORMATION
  Report Type: Spontaneous
  Country: US (occurrence: US)
  Receive Date: 20130628
  Receipt Date: 20130628
  Transmission Date: 20140414
  Serious: Yes (Other)
  Sender: FDA-Public Use
  Company Number: PHEH2013US013782

PATIENT
  Sex: Male

DRUGS (2)
  1. FEMARA [Suspect]
     Indication: BONE FORMATION DECREASED
  2. FEMARA [Suspect]
     Indication: OFF LABEL USE

REACTIONS (2)
  - Accident [Unknown]
  - Upper limb fracture [Unknown]
